FAERS Safety Report 4723204-7 (Version None)
Quarter: 2005Q3

REPORT INFORMATION
  Report Type: 
  Country: None (occurrence: None)
  Receive Date: 20050720
  Receipt Date: 20050707
  Transmission Date: 20060218
  Serious: Yes (Hospitalization, Other)
  Sender: FDA-Public Use
  Company Number: US-2005-010344

PATIENT
  Age: 42 Year
  Sex: Female

DRUGS (2)
  1. MAGNEVIST [Suspect]
     Indication: NUCLEAR MAGNETIC RESONANCE IMAGING BRAIN
     Dosage: 15 ML, 1 DOSE, INTRAVENOUS
     Route: 046
     Dates: start: 20050609, end: 20050609
  2. LEXAPRO [Concomitant]

REACTIONS (19)
  - ANXIETY [None]
  - BLINDNESS UNILATERAL [None]
  - BLOOD PRESSURE SYSTOLIC INCREASED [None]
  - CHEST PAIN [None]
  - CONDITION AGGRAVATED [None]
  - DEPRESSED LEVEL OF CONSCIOUSNESS [None]
  - DEPRESSION [None]
  - DYSPNOEA [None]
  - EYE PAIN [None]
  - FACTITIOUS DISORDER [None]
  - HAEMOPTYSIS [None]
  - MENTAL STATUS CHANGES [None]
  - MOANING [None]
  - PANIC ATTACK [None]
  - RESPIRATORY DISTRESS [None]
  - RESPIRATORY RATE INCREASED [None]
  - SPEECH DISORDER [None]
  - STRIDOR [None]
  - TACHYCARDIA [None]
